FAERS Safety Report 23453045 (Version 2)
Quarter: 2025Q3

REPORT INFORMATION
  Report Type: Report from Study
  Country: EU (occurrence: EU)
  Receive Date: 20240129
  Receipt Date: 20250911
  Transmission Date: 20251020
  Serious: Yes (Other)
  Sender: RANBAXY
  Company Number: EU-SUN PHARMACEUTICAL INDUSTRIES LTD-2024R1-429037

PATIENT
  Age: 83 Year
  Sex: Male
  Weight: 57 kg

DRUGS (4)
  1. LACOSAMIDE [Interacting]
     Active Substance: LACOSAMIDE
     Indication: Partial seizures
     Dosage: 450 MILLIGRAM, DAILY
     Route: 065
  2. EDOXABAN [Interacting]
     Active Substance: EDOXABAN
     Indication: Anticoagulant therapy
     Route: 065
  3. BRIVARACETAM [Concomitant]
     Active Substance: BRIVARACETAM
     Indication: Anticoagulant therapy
     Route: 065
  4. METOPROLOL [Concomitant]
     Active Substance: METOPROLOL
     Indication: Product used for unknown indication
     Route: 065

REACTIONS (1)
  - Drug interaction [Unknown]
